FAERS Safety Report 15103005 (Version 2)
Quarter: 2018Q3

REPORT INFORMATION
  Report Type: Spontaneous
  Country: US (occurrence: US)
  Receive Date: 20180703
  Receipt Date: 20180808
  Transmission Date: 20181010
  Serious: Yes (Other)
  Sender: FDA-Public Use
  Company Number: US-BAYER-2018-118834

PATIENT
  Age: 34 Year
  Sex: Female
  Weight: 60.99 kg

DRUGS (1)
  1. COPPERTONE WATER BABIES SPF 55 [Suspect]
     Active Substance: AVOBENZONE\HOMOSALATE\OCTISALATE\OCTOCRYLENE\OXYBENZONE
     Indication: THERAPEUTIC SKIN CARE TOPICAL
     Dosage: 3 DF (APPLICATIONS DOSE), UNK
     Route: 061
     Dates: start: 20180618, end: 20180618

REACTIONS (4)
  - Drug ineffective [Not Recovered/Not Resolved]
  - Photosensitivity reaction [Not Recovered/Not Resolved]
  - Sunburn [Not Recovered/Not Resolved]
  - Product lot number issue [None]

NARRATIVE: CASE EVENT DATE: 20180618
